FAERS Safety Report 6058137-X (Version None)
Quarter: 2009Q1

REPORT INFORMATION
  Report Type: 
  Country: None (occurrence: None)
  Receive Date: 20090127
  Receipt Date: 20090119
  Transmission Date: 20090719
  Serious: Yes (Hospitalization)
  Sender: FDA-Public Use
  Company Number: 230009M08AUS

PATIENT
  Age: 43 Year
  Sex: Male

DRUGS (2)
  1. REBIF [Suspect]
     Indication: MULTIPLE SCLEROSIS
     Dates: start: 20080701, end: 20081101
  2. ACETAMINOPHEN [Concomitant]

REACTIONS (4)
  - ASCITES [None]
  - LIVER FUNCTION TEST ABNORMAL [None]
  - LOCALISED OEDEMA [None]
  - OEDEMA PERIPHERAL [None]
